FAERS Safety Report 14013088 (Version 4)
Quarter: 2017Q4

REPORT INFORMATION
  Report Type: Spontaneous
  Country: FR (occurrence: FR)
  Receive Date: 20170926
  Receipt Date: 20171219
  Transmission Date: 20180321
  Serious: Yes (Hospitalization, Disabling)
  Sender: FDA-Public Use
  Company Number: FR-FERRINGPH-2017FE04632

PATIENT

DRUGS (11)
  1. MIFLONIL [Concomitant]
     Active Substance: BUDESONIDE
     Indication: LUNG INFECTION
     Dosage: 400 ?G EVERY MORNING
     Route: 055
  2. KARDEGIC [Concomitant]
     Active Substance: ASPIRIN DL-LYSINE
     Indication: PROPHYLAXIS
  3. ULTIBRO BREEZHALER [Concomitant]
     Active Substance: GLYCOPYRRONIUM\INDACATEROL
     Indication: CHRONIC OBSTRUCTIVE PULMONARY DISEASE
  4. FIRMAGON [Suspect]
     Active Substance: DEGARELIX ACETATE
     Dosage: 80 MG, ONCE/SINGLE
     Route: 058
     Dates: start: 20170802, end: 20170802
  5. FIRMAGON [Suspect]
     Active Substance: DEGARELIX ACETATE
     Dosage: 240 MG, ONCE/SINGLE
     Route: 058
     Dates: start: 20170706, end: 20170706
  6. NASACOR [Concomitant]
     Indication: LUNG INFECTION
     Dosage: 1 DF, DAILY
     Route: 045
  7. KARDEGIC [Concomitant]
     Active Substance: ASPIRIN DL-LYSINE
     Indication: ARTERIOSCLEROSIS
     Dosage: 1 DF, DAILY
     Route: 048
  8. MIFLONIL [Concomitant]
     Active Substance: BUDESONIDE
     Indication: ASTHMA
  9. NASACOR [Concomitant]
     Indication: RHINITIS ALLERGIC
  10. FIRMAGON [Suspect]
     Active Substance: DEGARELIX ACETATE
     Indication: PROSTATE CANCER
     Dosage: 80 MG, ONCE/SINGLE
     Route: 058
     Dates: start: 20170902, end: 20170902
  11. ULTIBRO BREEZHALER [Concomitant]
     Active Substance: GLYCOPYRRONIUM\INDACATEROL
     Indication: LUNG INFECTION
     Dosage: 1 DF, DAILY
     Route: 055

REACTIONS (4)
  - Cerebrovascular accident [Not Recovered/Not Resolved]
  - Retinal artery occlusion [Not Recovered/Not Resolved]
  - Wrong technique in product usage process [Unknown]
  - Blindness [Not Recovered/Not Resolved]

NARRATIVE: CASE EVENT DATE: 20170901
